FAERS Safety Report 4284855-X (Version None)
Quarter: 2004Q1

REPORT INFORMATION
  Report Type: 
  Country: None (occurrence: None)
  Receive Date: 20040203
  Receipt Date: 20040203
  Transmission Date: 20041129
  Serious: Yes (Disabling)
  Sender: FDA-Public Use
  Company Number: None

PATIENT
  Age: 65 Year
  Sex: Female
  Weight: 59.8748 kg

DRUGS (1)
  1. CITANEST PLAIN [Suspect]
     Indication: ARTIFICIAL CROWN PROCEDURE
     Dosage: 4%
     Dates: start: 20030827

REACTIONS (4)
  - AGEUSIA [None]
  - DYSAESTHESIA [None]
  - GLOSSODYNIA [None]
  - PARAESTHESIA [None]
